FAERS Safety Report 4358937-8 (Version None)
Quarter: 2004Q2

REPORT INFORMATION
  Report Type: 
  Country: None (occurrence: None)
  Receive Date: 20040512
  Receipt Date: 20040428
  Transmission Date: 20050107
  Serious: Yes (Other)
  Sender: FDA-Public Use
  Company Number: US_0405102718

PATIENT
  Age: 65 Year
  Sex: Female

DRUGS (5)
  1. EVISTA [Suspect]
  2. FOSAMAX [Concomitant]
  3. ACTONEL [Concomitant]
  4. MIACALCIN [Concomitant]
  5. HORMONE REPLACEMENT THERAPY [Concomitant]

REACTIONS (2)
  - FIBULA FRACTURE [None]
  - FOOT FRACTURE [None]
